FAERS Safety Report 10221387 (Version 1)
Quarter: 2014Q2

REPORT INFORMATION
  Report Type: Spontaneous
  Country: HU (occurrence: HU)
  Receive Date: 20140606
  Receipt Date: 20140606
  Transmission Date: 20141212
  Serious: Yes (Hospitalization, Other)
  Sender: FDA-Public Use
  Company Number: HU-ACTELION-A-CH2014-099739

PATIENT
  Age: 46 Year
  Sex: Female

DRUGS (5)
  1. TRACLEER [Suspect]
     Indication: PULMONARY ARTERIAL HYPERTENSION
     Dosage: 125 MG, BID
     Route: 048
     Dates: start: 20131214
  2. TRACLEER [Suspect]
     Dosage: 62.5 MG, BID
     Route: 048
     Dates: start: 20131112, end: 20131212
  3. FUROSEMIDE [Concomitant]
     Dosage: 125 MG, BID
  4. KALIUM [Concomitant]
     Dosage: 600 MG, TID
  5. PANTOPRAZOLE [Concomitant]
     Dosage: 40 MG, BID

REACTIONS (4)
  - Right ventricular failure [Unknown]
  - Oedema [Unknown]
  - Atrial fibrillation [Unknown]
  - Breast cancer [Unknown]
